FAERS Safety Report 5453193-1 (Version None)
Quarter: 2007Q3

REPORT INFORMATION
  Report Type: 
  Country: None (occurrence: None)
  Receive Date: 20070914
  Receipt Date: 20070905
  Transmission Date: 20080115
  Serious: Yes (Hospitalization, Other)
  Sender: FDA-Public Use
  Company Number: US-MERCK-0707USA02096

PATIENT
  Age: 78 Year
  Sex: Female
  Weight: 75 kg

DRUGS (5)
  1. INVANZ [Suspect]
     Indication: DIABETIC FOOT INFECTION
     Route: 042
     Dates: start: 20070615, end: 20070618
  2. MORPHINE [Concomitant]
     Indication: PAIN
     Route: 042
     Dates: start: 20070615, end: 20070618
  3. LOVENOX [Concomitant]
     Indication: THROMBOSIS PROPHYLAXIS
     Route: 058
     Dates: start: 20070615, end: 20070703
  4. DARVOCET [Concomitant]
     Indication: PAIN
     Route: 048
     Dates: start: 20070615, end: 20070703
  5. NEXIUM [Concomitant]
     Indication: GASTROINTESTINAL DISORDER
     Route: 042
     Dates: start: 20070615, end: 20070703

REACTIONS (5)
  - ARTERIAL OCCLUSIVE DISEASE [None]
  - CONVULSION [None]
  - LOCALISED INFECTION [None]
  - OEDEMA PERIPHERAL [None]
  - VEIN DISORDER [None]
